FAERS Safety Report 17541617 (Version 4)
Quarter: 2020Q3

REPORT INFORMATION
  Report Type: Report from Study
  Country: None (occurrence: GB)
  Receive Date: 20200313
  Receipt Date: 20200722
  Transmission Date: 20201102
  Serious: Yes (Hospitalization)
  Sender: FDA-Public Use
  Company Number: GB-ABBVIE-20P-167-3311153-00

PATIENT
  Age: 78 Year
  Sex: Male
  Weight: 78.6 kg

DRUGS (18)
  1. VENETOCLAX. [Suspect]
     Active Substance: VENETOCLAX
     Indication: PLASMA CELL MYELOMA
     Dosage: CYCLE 1?8: 21 DAYS
     Route: 048
     Dates: start: 20170428, end: 20171011
  2. VENETOCLAX. [Suspect]
     Active Substance: VENETOCLAX
     Dosage: CYCLE 9+: 35 DAYS
     Route: 048
     Dates: start: 20200327
  3. DEXAMETHASONE. [Suspect]
     Active Substance: DEXAMETHASONE
     Indication: PLASMA CELL MYELOMA
     Dosage: C1? 8:D 1,2,4,5,8,9,11 + 12 OF 21D CYCLE. C9+:D1,2,8,9,15,16,22 + 23 OF 35D CYCLE
     Route: 048
     Dates: start: 20170428, end: 20190119
  4. SODIUM BICARBONATE. [Concomitant]
     Active Substance: SODIUM BICARBONATE
     Indication: SCLERAL DISORDER
     Route: 047
     Dates: start: 20200217, end: 20200306
  5. BORTEZOMIB. [Suspect]
     Active Substance: BORTEZOMIB
     Indication: PLASMA CELL MYELOMA
     Dosage: C1?8:D1,4,8+11,C=21D. C9+:D1,8,15+22, C=25D.
     Route: 058
     Dates: start: 20170428, end: 20200228
  6. ALLOPURINOL. [Concomitant]
     Active Substance: ALLOPURINOL
     Indication: PROPHYLAXIS
     Route: 048
     Dates: start: 20170428, end: 20170518
  7. SODIUM BICARBONATE. [Concomitant]
     Active Substance: SODIUM BICARBONATE
     Indication: LACRIMATION INCREASED
  8. DEXAMETHASONE. [Suspect]
     Active Substance: DEXAMETHASONE
     Dosage: C9+:DAY 1, 2, 8, 9, 15, 16, 22 AND 23 OF 35D CYCLE
     Route: 048
     Dates: start: 20191213, end: 20200229
  9. ZOMETA [Concomitant]
     Active Substance: ZOLEDRONIC ACID
     Indication: PLASMA CELL MYELOMA
     Route: 042
     Dates: start: 20170619
  10. DOXYCYCLINE. [Concomitant]
     Active Substance: DOXYCYCLINE
     Indication: ANTIBIOTIC PROPHYLAXIS
     Route: 048
     Dates: start: 20190329
  11. COTRIMOXAZOLE [Concomitant]
     Active Substance: SULFAMETHOXAZOLE\TRIMETHOPRIM
     Indication: ANTIBIOTIC PROPHYLAXIS
     Route: 048
     Dates: start: 20190329
  12. LANSOPRAZOLE. [Concomitant]
     Active Substance: LANSOPRAZOLE
     Indication: CHEMOTHERAPY
     Route: 048
     Dates: start: 20171115
  13. COTRIMOXAZOLE [Concomitant]
     Active Substance: SULFAMETHOXAZOLE\TRIMETHOPRIM
     Indication: ANTIBIOTIC PROPHYLAXIS
     Route: 048
     Dates: start: 20170428, end: 20190328
  14. VENETOCLAX. [Suspect]
     Active Substance: VENETOCLAX
     Dosage: CYCLE 9+: 35 DAYS
     Route: 048
     Dates: start: 20171012, end: 20200305
  15. DEXAMETHASONE. [Suspect]
     Active Substance: DEXAMETHASONE
     Dosage: C9+:DAY 1, 2, 8, 9, 15, 16, 22 AND 23 OF 35D CYCLE
     Route: 048
     Dates: start: 20190222, end: 20191130
  16. DEXAMETHASONE. [Suspect]
     Active Substance: DEXAMETHASONE
     Dosage: C9+:DAY 1, 2, 8, 9, 15, 16, 22 AND 23 OF 35D CYCLE
     Route: 048
     Dates: start: 20200327
  17. ACICLOVIR [Concomitant]
     Active Substance: ACYCLOVIR
     Indication: ANTIVIRAL PROPHYLAXIS
     Route: 048
     Dates: start: 20170428
  18. LANSOPRAZOLE. [Concomitant]
     Active Substance: LANSOPRAZOLE
     Indication: GASTROOESOPHAGEAL REFLUX PROPHYLAXIS

REACTIONS (1)
  - Influenza [Recovered/Resolved]

NARRATIVE: CASE EVENT DATE: 20200306
